FAERS Safety Report 6023226-2 (Version None)
Quarter: 2008Q4

REPORT INFORMATION
  Report Type: 
  Country: None (occurrence: None)
  Receive Date: 20081230
  Receipt Date: 20081215
  Transmission Date: 20090506
  Serious: Yes (Hospitalization)
  Sender: FDA-Public Use
  Company Number: US-ABBOTT-08P-163-0495053-00

PATIENT
  Sex: Male

DRUGS (1)
  1. ZEMPLAR CAPSULES 2MCG [Suspect]
     Indication: HYPERPARATHYROIDISM
     Dosage: DAILY
     Dates: start: 20051001

REACTIONS (1)
  - KNEE ARTHROPLASTY [None]
